FAERS Safety Report 22808489 (Version 4)
Quarter: 2023Q4

REPORT INFORMATION
  Report Type: Report from Study
  Country: US (occurrence: US)
  Receive Date: 20230810
  Receipt Date: 20231214
  Transmission Date: 20240110
  Serious: Yes (Hospitalization)
  Sender: FDA-Public Use
  Company Number: US-002147023-NVSC2023US174621

PATIENT
  Age: 25 Year
  Sex: Female

DRUGS (1)
  1. KESIMPTA [Suspect]
     Active Substance: OFATUMUMAB
     Indication: Multiple sclerosis
     Dosage: 20 MG
     Route: 065

REACTIONS (10)
  - Multiple sclerosis relapse [Unknown]
  - Mobility decreased [Unknown]
  - Inappropriate schedule of product administration [Unknown]
  - Influenza like illness [Recovering/Resolving]
  - Feeling abnormal [Recovering/Resolving]
  - Head discomfort [Recovering/Resolving]
  - Sleep disorder [Recovering/Resolving]
  - Vomiting [Recovering/Resolving]
  - Pyrexia [Recovering/Resolving]
  - Headache [Recovering/Resolving]

NARRATIVE: CASE EVENT DATE: 20230730
